FAERS Safety Report 4712511-X (Version None)
Quarter: 2005Q3

REPORT INFORMATION
  Report Type: 
  Country: None (occurrence: None)
  Receive Date: 20050711
  Receipt Date: 20050627
  Transmission Date: 20060218
  Serious: Yes (Other)
  Sender: FDA-Public Use
  Company Number: 2005087479

PATIENT
  Age: 35 Year
  Sex: Male

DRUGS (5)
  1. GEODON [Suspect]
     Indication: PSYCHOTIC DISORDER
     Dosage: 120 MG (60 MG, 2 IN 1 D), ORAL
     Route: 048
     Dates: start: 20041104
  2. LEXAPRO [Suspect]
     Indication: DEPRESSION
     Dosage: (30 MG)
     Dates: start: 20030125
  3. NORVASC [Concomitant]
  4. HYDROCHLOROTHIAZIDE [Concomitant]
  5. FLONASE [Concomitant]

REACTIONS (3)
  - BLOOD PROLACTIN INCREASED [None]
  - BREAST CYST [None]
  - GYNAECOMASTIA [None]
